FAERS Safety Report 19818833 (Version 1)
Quarter: 2021Q3

REPORT INFORMATION
  Report Type: Spontaneous
  Country: US (occurrence: US)
  Receive Date: 20210912
  Receipt Date: 20210912
  Transmission Date: 20211014
  Serious: Yes (Other)
  Sender: FDA-Public Use
  Company Number: US-STRIDES ARCOLAB LIMITED-2021SP025914

PATIENT
  Age: 66 Year
  Sex: Female

DRUGS (2)
  1. PREDNISOLONE. [Suspect]
     Active Substance: PREDNISOLONE
     Indication: HEADACHE
     Dosage: 60 MILLIGRAM PER DAY
     Route: 065
  2. PREDNISOLONE. [Suspect]
     Active Substance: PREDNISOLONE
     Indication: GIANT CELL ARTERITIS
     Dosage: UNK
     Route: 065

REACTIONS (2)
  - Insomnia [Unknown]
  - Acute psychosis [Unknown]
